FAERS Safety Report 9266453 (Version 1)
Quarter: 2013Q2

REPORT INFORMATION
  Report Type: Spontaneous
  Country: US (occurrence: US)
  Receive Date: 20130502
  Receipt Date: 20130502
  Transmission Date: 20140414
  Serious: No
  Sender: FDA-Public Use
  Company Number: US-BIOGENIDEC-2013BI039283

PATIENT
  Age: 46 Year
  Sex: Male

DRUGS (1)
  1. TYSABRI [Suspect]
     Indication: MULTIPLE SCLEROSIS
     Route: 042
     Dates: start: 20120106

REACTIONS (6)
  - Influenza like illness [Not Recovered/Not Resolved]
  - Ataxia [Not Recovered/Not Resolved]
  - Conjunctivitis infective [Recovered/Resolved]
  - Multiple allergies [Unknown]
  - Multiple sclerosis [Unknown]
  - Multiple sclerosis relapse [Not Recovered/Not Resolved]
